FAERS Safety Report 16004589 (Version 1)
Quarter: 2019Q1

REPORT INFORMATION
  Report Type: Spontaneous
  Country: PT (occurrence: PT)
  Receive Date: 20190226
  Receipt Date: 20190226
  Transmission Date: 20190418
  Serious: Yes (Death, Life-Threatening, Hospitalization, Other)
  Sender: FDA-Public Use
  Company Number: PT-AUROBINDO-AUR-APL-2019-006274

PATIENT

DRUGS (9)
  1. OMEPRAZOLE. [Suspect]
     Active Substance: OMEPRAZOLE
     Indication: PRODUCT USED FOR UNKNOWN INDICATION
     Dosage: 20 MILLIGRAM, DAILY
     Route: 065
  2. DESLORATADINE. [Concomitant]
     Active Substance: DESLORATADINE
     Indication: RASH MACULO-PAPULAR
     Dosage: 5 MILLIGRAM, DAILY
     Route: 065
  3. DESLORATADINE. [Concomitant]
     Active Substance: DESLORATADINE
     Indication: COUGH
  4. DICLOFENAC [Suspect]
     Active Substance: DICLOFENAC
     Indication: PRODUCT USED FOR UNKNOWN INDICATION
     Dosage: 75 MILLIGRAM, TWO TIMES A DAY
     Route: 065
  5. ALLOPURINOL. [Suspect]
     Active Substance: ALLOPURINOL
     Indication: GOUT
     Dosage: 300 MILLIGRAM, ONCE A DAY
     Route: 065
  6. MOXIFLOXACIN. [Concomitant]
     Active Substance: MOXIFLOXACIN
     Indication: COUGH
  7. PARACETAMOL [Concomitant]
     Active Substance: ACETAMINOPHEN
     Indication: PYREXIA
     Dosage: 1 GRAM, 3 TIMES A DAY
     Route: 065
  8. MOXIFLOXACIN. [Concomitant]
     Active Substance: MOXIFLOXACIN
     Indication: RASH MACULO-PAPULAR
  9. MOXIFLOXACIN. [Concomitant]
     Active Substance: MOXIFLOXACIN
     Indication: PYREXIA
     Dosage: 400 MILLIGRAM, DAILY
     Route: 048

REACTIONS (26)
  - Epstein-Barr virus infection [Unknown]
  - Alanine aminotransferase increased [Unknown]
  - Malnutrition [Unknown]
  - Tubulointerstitial nephritis [Unknown]
  - Leukocytosis [Unknown]
  - Metabolic acidosis [Unknown]
  - Rash maculo-papular [Unknown]
  - Cough [Unknown]
  - Acute kidney injury [Unknown]
  - C-reactive protein increased [Unknown]
  - Haemophagocytic lymphohistiocytosis [Fatal]
  - Odynophagia [Unknown]
  - Aspartate aminotransferase increased [Unknown]
  - Face oedema [Unknown]
  - Toxicity to various agents [Unknown]
  - Blood creatinine increased [Unknown]
  - Hyperkalaemia [Unknown]
  - Malaise [Unknown]
  - Tachypnoea [Unknown]
  - Cachexia [Unknown]
  - Drug reaction with eosinophilia and systemic symptoms [Unknown]
  - Pyrexia [Unknown]
  - Fatigue [Unknown]
  - Blood lactate dehydrogenase increased [Unknown]
  - Blood urea increased [Unknown]
  - Serum ferritin increased [Unknown]
